FAERS Safety Report 24020139 (Version 1)
Quarter: 2024Q2

REPORT INFORMATION
  Report Type: Other
  Country: NL (occurrence: NL)
  Receive Date: 20240627
  Receipt Date: 20240627
  Transmission Date: 20240715
  Serious: Yes (Hospitalization)
  Sender: FDA-Public Use
  Company Number: NL-Bion-013320

PATIENT
  Age: 42 Year
  Sex: Male
  Weight: 65.9 kg

DRUGS (6)
  1. VALPROIC ACID [Suspect]
     Active Substance: VALPROIC ACID
     Indication: Schizoaffective disorder
     Dosage: 2G
  2. GLYCOPYRRONIUM [Concomitant]
     Active Substance: GLYCOPYRRONIUM
     Indication: Schizoaffective disorder
  3. LACTULOSE [Concomitant]
     Active Substance: LACTULOSE
     Indication: Schizoaffective disorder
     Dosage: 30ML
  4. MEMANTINE [Concomitant]
     Active Substance: MEMANTINE
     Indication: Schizoaffective disorder
     Dosage: 20MG
  5. LORAZEPAM [Concomitant]
     Active Substance: LORAZEPAM
     Indication: Schizoaffective disorder
  6. DROPERIDOL [Concomitant]
     Active Substance: DROPERIDOL
     Indication: Schizoaffective disorder

REACTIONS (1)
  - Rebound effect [Unknown]
